FAERS Safety Report 4899700-9 (Version None)
Quarter: 2006Q1

REPORT INFORMATION
  Report Type: 
  Country: None (occurrence: None)
  Receive Date: 20060131
  Receipt Date: 20060117
  Transmission Date: 20060701
  Serious: Yes (Other)
  Sender: FDA-Public Use
  Company Number: S06-USA-00238-01

PATIENT
  Age: 14 Year
  Sex: Male

DRUGS (2)
  1. CITALOPRAM HYDROBROMIDE [Suspect]
     Indication: ANXIETY
     Dosage: 20 MG QD; PO
     Route: 048
     Dates: start: 20040101
  2. ATOMOXETINE [Suspect]
     Dosage: 60 MG QD; PO
     Route: 048

REACTIONS (1)
  - HYPERTENSION [None]
